FAERS Safety Report 10160846 (Version 2)
Quarter: 2014Q2

REPORT INFORMATION
  Report Type: Spontaneous
  Country: JP (occurrence: JP)
  Receive Date: 20140508
  Receipt Date: 20140602
  Transmission Date: 20141212
  Serious: Yes (Hospitalization)
  Sender: FDA-Public Use
  Company Number: JP-B.I. PHARMACEUTICALS,INC./RIDGEFIELD-2014-BI-20450NB

PATIENT
  Age: 82 Year
  Sex: Male
  Weight: 66 kg

DRUGS (8)
  1. TRAZENTA [Suspect]
     Indication: TYPE 2 DIABETES MELLITUS
     Dosage: 5 MG
     Route: 048
     Dates: start: 20130627, end: 20140414
  2. BAYASPIRIN [Concomitant]
     Indication: ANGINA PECTORIS
     Dosage: 100 MG
     Route: 048
     Dates: start: 201110
  3. CO-DIO [Concomitant]
     Indication: HYPERLIPIDAEMIA
     Dosage: STRENGTH AND DAILY DOSE: 1 DOSAGE FORM
     Route: 048
     Dates: start: 20100928
  4. LIVALO OD [Concomitant]
     Indication: DYSLIPIDAEMIA
     Dosage: 2 MG
     Route: 048
     Dates: start: 20090604
  5. AMARYL [Concomitant]
     Indication: TYPE 2 DIABETES MELLITUS
     Dosage: 0.5 MG
     Route: 048
     Dates: start: 20130111
  6. CONIEL [Concomitant]
     Indication: HYPERTENSION
     Dosage: 8 MG
     Route: 048
     Dates: start: 201110
  7. ZOLADEX [Concomitant]
     Indication: PROSTATE CANCER
     Route: 058
     Dates: start: 2008
  8. CASODEX [Concomitant]
     Indication: PROSTATE CANCER
     Dosage: 80 MG
     Route: 065
     Dates: start: 2008

REACTIONS (1)
  - Intestinal obstruction [Recovered/Resolved]
